FAERS Safety Report 4987436-5 (Version None)
Quarter: 2006Q2

REPORT INFORMATION
  Report Type: 
  Country: None (occurrence: None)
  Receive Date: 20060501
  Receipt Date: 20050829
  Transmission Date: 20061013
  Serious: Yes (Death)
  Sender: FDA-Public Use
  Company Number: US-MERCK-0508USA04882

PATIENT
  Age: 55 Year
  Sex: Male
  Weight: 159 kg

DRUGS (12)
  1. VIOXX [Suspect]
     Indication: ARTHRITIS
     Route: 048
     Dates: start: 20040501, end: 20040820
  2. VIOXX [Suspect]
     Indication: ARTHRALGIA
     Route: 048
     Dates: start: 20040501, end: 20040820
  3. GLUCOPHAGE [Concomitant]
     Indication: DIABETES MELLITUS
     Route: 065
  4. AMARYL [Concomitant]
     Indication: DIABETES MELLITUS
     Route: 065
  5. ASPIRIN [Concomitant]
     Route: 065
  6. ISORDIL [Concomitant]
     Route: 065
  7. TOPROL-XL [Concomitant]
     Route: 065
  8. NITROLINGUAL [Concomitant]
     Route: 065
  9. LOTENSIN [Concomitant]
     Route: 065
  10. LASIX [Concomitant]
     Route: 065
  11. GEMFIBROZIL [Concomitant]
     Route: 065
  12. RHINOCORT [Concomitant]
     Route: 065

REACTIONS (12)
  - ACUTE MYOCARDIAL INFARCTION [None]
  - AGITATION [None]
  - APNOEIC ATTACK [None]
  - BLOOD PRESSURE IMMEASURABLE [None]
  - CARDIAC ARREST [None]
  - CONDITION AGGRAVATED [None]
  - CYANOSIS [None]
  - DIABETES MELLITUS [None]
  - HYPERTENSION [None]
  - RESPIRATORY ARREST [None]
  - SUDDEN CARDIAC DEATH [None]
  - WEIGHT DECREASED [None]
